FAERS Safety Report 8008184-3 (Version None)
Quarter: 2011Q4

REPORT INFORMATION
  Report Type: 
  Country: None (occurrence: None)
  Receive Date: 20111227
  Receipt Date: 20111216
  Transmission Date: 20120403
  Serious: Yes (Other)
  Sender: FDA-Public Use
  Company Number: US-JNJFOC-20111207998

PATIENT
  Sex: Female
  Weight: 79.38 kg

DRUGS (3)
  1. CORGARD [Concomitant]
     Indication: LONG QT SYNDROME
     Route: 048
  2. REMICADE [Suspect]
     Indication: CROHN'S DISEASE
     Route: 042
     Dates: start: 20110101
  3. IRON [Concomitant]
     Route: 065

REACTIONS (1)
  - INTESTINAL STENOSIS [None]
